FAERS Safety Report 4842361-5 (Version None)
Quarter: 2005Q4

REPORT INFORMATION
  Report Type: 
  Country: None (occurrence: None)
  Receive Date: 20051125
  Receipt Date: 20051114
  Transmission Date: 20060501
  Serious: Yes (Hospitalization, Other)
  Sender: FDA-Public Use
  Company Number: 2005147222

PATIENT
  Sex: Male

DRUGS (7)
  1. NARDIL [Suspect]
     Indication: ANXIETY
     Dosage: SEE IMAGE
     Route: 048
     Dates: start: 19780101, end: 20050101
  2. NARDIL [Suspect]
     Indication: BIPOLAR DISORDER
     Dosage: SEE IMAGE
     Route: 048
     Dates: start: 19780101, end: 20050101
  3. NARDIL [Suspect]
     Indication: DEPRESSION
     Dosage: SEE IMAGE
     Route: 048
     Dates: start: 19780101, end: 20050101
  4. NARDIL [Suspect]
     Indication: ANXIETY
     Dosage: SEE IMAGE
     Route: 048
     Dates: start: 20050101
  5. NARDIL [Suspect]
     Indication: BIPOLAR DISORDER
     Dosage: SEE IMAGE
     Route: 048
     Dates: start: 20050101
  6. NARDIL [Suspect]
     Indication: DEPRESSION
     Dosage: SEE IMAGE
     Route: 048
     Dates: start: 20050101
  7. XANAX [Concomitant]

REACTIONS (8)
  - CERVICAL SPINAL STENOSIS [None]
  - CONSTIPATION [None]
  - DRUG EFFECT DECREASED [None]
  - FOOD CRAVING [None]
  - HYPERCHLORHYDRIA [None]
  - PANIC ATTACK [None]
  - STOMACH DISCOMFORT [None]
  - WEIGHT INCREASED [None]
